FAERS Safety Report 16733833 (Version 1)
Quarter: 2019Q3

REPORT INFORMATION
  Report Type: Spontaneous
  Country: FR (occurrence: FR)
  Receive Date: 20190823
  Receipt Date: 20190823
  Transmission Date: 20191005
  Serious: Yes (Hospitalization)
  Sender: FDA-Public Use
  Company Number: FR-AUROBINDO-AUR-APL-2019-054840

PATIENT

DRUGS (2)
  1. IBUPROFEN. [Suspect]
     Active Substance: IBUPROFEN
     Indication: PRODUCT USED FOR UNKNOWN INDICATION
     Dosage: 17 DOSAGE FORM
     Route: 048
     Dates: start: 20190722, end: 20190722
  2. DAFALGAN CODEINE [Suspect]
     Active Substance: ACETAMINOPHEN\CODEINE PHOSPHATE
     Indication: PRODUCT USED FOR UNKNOWN INDICATION
     Dosage: 20 DOSAGE FORM
     Route: 048
     Dates: start: 20190722, end: 20190722

REACTIONS (1)
  - Analgesic drug level increased [Recovered/Resolved]

NARRATIVE: CASE EVENT DATE: 20190722
